FAERS Safety Report 8542409-0 (Version None)
Quarter: 2012Q3

REPORT INFORMATION
  Report Type: 
  Country: None (occurrence: None)
  Receive Date: 20120726
  Receipt Date: 20120723
  Transmission Date: 20120928
  Serious: Yes (Other)
  Sender: FDA-Public Use
  Company Number: BR-GILEAD-2011-0034871

PATIENT
  Sex: Male

DRUGS (15)
  1. ETHAMBUTOL HYDROCHLORIDE [Suspect]
     Indication: TUBERCULOSIS
     Dosage: UNK
     Dates: start: 20101016, end: 20101227
  2. RIFAMPIN [Suspect]
     Indication: TUBERCULOSIS
     Dosage: 450 MG, QD
     Dates: start: 20101016, end: 20110101
  3. RIFAMPIN [Suspect]
     Dosage: 450 MG, QD
  4. ISONIAZID [Suspect]
     Indication: TUBERCULOSIS
     Dosage: UNK
     Dates: start: 20101016, end: 20110101
  5. EFAVIRENZ [Suspect]
     Indication: HIV INFECTION
     Dosage: UNK
     Dates: start: 20101125, end: 20110101
  6. ACYCLOVIR [Suspect]
     Indication: HERPES ZOSTER
     Dosage: 4000 UNK, UNK
     Dates: start: 20101218, end: 20101225
  7. ACETAMINOPHEN [Suspect]
     Indication: HEADACHE
     Dosage: UNK
     Dates: start: 20101213
  8. PYRAZINAMIDE [Suspect]
     Indication: TUBERCULOSIS
     Dosage: 1200 MG, UNK
     Dates: start: 20101016, end: 20101227
  9. ETHAMBUTOL HYDROCHLORIDE [Suspect]
     Dosage: UNK
  10. TENOFOVIR DISOPROXIL FUMARATE [Suspect]
     Indication: HIV INFECTION
  11. BACTRIM [Suspect]
     Indication: PROPHYLAXIS
     Dosage: 400 MG, UNK
     Dates: start: 20101213
  12. EFAVIRENZ [Suspect]
     Dosage: UNK
  13. LAMIVUDINE [Suspect]
     Indication: HIV INFECTION
     Dosage: 300 MG, QD
     Dates: start: 20101125
  14. AZITHROMYCIN [Suspect]
     Indication: PROPHYLAXIS
     Dosage: 1500 UNK, UNK
     Dates: start: 20101104
  15. PREDNISONE [Suspect]
     Indication: MENINGITIS
     Dosage: 40 MG, UNK
     Dates: start: 20101016

REACTIONS (3)
  - ASPARTATE AMINOTRANSFERASE INCREASED [None]
  - ALANINE AMINOTRANSFERASE INCREASED [None]
  - NAUSEA [None]
